FAERS Safety Report 9370070 (Version 1)
Quarter: 2013Q2

REPORT INFORMATION
  Report Type: Report from Study
  Country: HU (occurrence: HU)
  Receive Date: 20130626
  Receipt Date: 20130626
  Transmission Date: 20140414
  Serious: Yes (Hospitalization)
  Sender: FDA-Public Use
  Company Number: HU-ELI_LILLY_AND_COMPANY-HU201303007713

PATIENT
  Age: 22 Year
  Sex: Female
  Weight: 58 kg

DRUGS (2)
  1. OLANZAPINE LONG-ACTING IM [Suspect]
     Indication: SCHIZOPHRENIA
     Dosage: 300 MG EVERY 2 WEEKS
     Route: 030
     Dates: start: 20121015, end: 20130103
  2. OLANZAPINE [Concomitant]
     Indication: SCHIZOPHRENIA
     Dosage: UNK
     Dates: start: 20121004

REACTIONS (1)
  - Injection site abscess [Recovered/Resolved]
